FAERS Safety Report 8281353-3 (Version None)
Quarter: 2012Q2

REPORT INFORMATION
  Report Type: 
  Country: None (occurrence: None)
  Receive Date: 20120413
  Receipt Date: 20120410
  Transmission Date: 20120825
  Serious: No
  Sender: FDA-Public Use
  Company Number: US-PFIZER INC-2012089383

PATIENT
  Sex: Female
  Weight: 54.422 kg

DRUGS (5)
  1. ACETYLSALICYLIC ACID [Concomitant]
     Dosage: 81 MG, UNK
  2. PRISTIQ [Suspect]
     Indication: OBSESSIVE-COMPULSIVE DISORDER
  3. PRISTIQ [Suspect]
     Indication: ANXIETY
     Dosage: 50 MG, DAILY
     Route: 048
     Dates: start: 20120319
  4. XANAX [Concomitant]
     Dosage: 0.5 MG, 2X/DAY
  5. LOTREL [Concomitant]
     Indication: HYPERTENSION
     Dosage: UNK

REACTIONS (8)
  - SKIN DISCOLOURATION [None]
  - MACULE [None]
  - PRURITUS [None]
  - SWELLING FACE [None]
  - DERMATITIS CONTACT [None]
  - CONSTIPATION [None]
  - RASH GENERALISED [None]
  - EYE SWELLING [None]
